FAERS Safety Report 6673044-7 (Version None)
Quarter: 2010Q2

REPORT INFORMATION
  Report Type: 
  Country: None (occurrence: None)
  Receive Date: 20100408
  Receipt Date: 20100331
  Transmission Date: 20101027
  Serious: Yes (Other)
  Sender: FDA-Public Use
  Company Number: PHHY2010AU16543

PATIENT

DRUGS (2)
  1. EXELON [Suspect]
     Indication: DEMENTIA ALZHEIMER'S TYPE
     Dosage: 5CM
     Route: 062
     Dates: start: 20090116
  2. EXELON [Suspect]
     Dosage: 10 CM
     Route: 062
     Dates: start: 20090201, end: 20100125

REACTIONS (4)
  - ABNORMAL DREAMS [None]
  - AGGRESSION [None]
  - HALLUCINATION [None]
  - PERSONALITY CHANGE [None]
